FAERS Safety Report 19918247 (Version 1)
Quarter: 2021Q4

REPORT INFORMATION
  Report Type: Spontaneous
  Country: US (occurrence: US)
  Receive Date: 20211005
  Receipt Date: 20211005
  Transmission Date: 20220304
  Serious: Yes (Hospitalization)
  Sender: FDA-Public Use
  Company Number: None

PATIENT
  Age: 73 Year
  Sex: Male
  Weight: 99.3 kg

DRUGS (3)
  1. CASIRIVIMAB [Suspect]
     Active Substance: CASIRIVIMAB
     Indication: COVID-19
     Dosage: ?          OTHER FREQUENCY:ONCE;
     Route: 040
     Dates: start: 20210929, end: 20210929
  2. IMDEVIMAB [Suspect]
     Active Substance: IMDEVIMAB
     Indication: COVID-19
     Dosage: ?          OTHER FREQUENCY:ONCE;
     Route: 041
     Dates: start: 20210929, end: 20210929
  3. sodium chloride 0.9 % [Concomitant]
     Dates: start: 20210929, end: 20210929

REACTIONS (4)
  - Vomiting [None]
  - Diarrhoea [None]
  - Acute kidney injury [None]
  - Hypophagia [None]

NARRATIVE: CASE EVENT DATE: 20211003
